FAERS Safety Report 7913567-3 (Version None)
Quarter: 2011Q4

REPORT INFORMATION
  Report Type: 
  Country: None (occurrence: None)
  Receive Date: 20111115
  Receipt Date: 20111104
  Transmission Date: 20120403
  Serious: Yes (Life-Threatening, Hospitalization)
  Sender: FDA-Public Use
  Company Number: DK-JNJFOC-20111102127

PATIENT
  Sex: Male

DRUGS (1)
  1. REMICADE [Suspect]
     Indication: ARTHRITIS
     Dosage: DOSE STRENGTH: 100MG
     Route: 042
     Dates: start: 20091120, end: 20111021

REACTIONS (1)
  - PNEUMOCYSTIS JIROVECI INFECTION [None]
